FAERS Safety Report 25117587 (Version 1)
Quarter: 2025Q1

REPORT INFORMATION
  Report Type: Spontaneous
  Country: IR (occurrence: IR)
  Receive Date: 20250325
  Receipt Date: 20250325
  Transmission Date: 20250408
  Serious: Yes (Death, Life-Threatening, Hospitalization, Other)
  Sender: RANBAXY
  Company Number: IR-SUN PHARMACEUTICAL INDUSTRIES LTD-2025R1-500024

PATIENT
  Age: 17 Year
  Sex: Female

DRUGS (1)
  1. DOCETAXEL [Suspect]
     Active Substance: DOCETAXEL
     Indication: Angiosarcoma
     Route: 065

REACTIONS (4)
  - Respiratory failure [Fatal]
  - Disease progression [Unknown]
  - Leukopenia [Unknown]
  - Dyspnoea [Unknown]
